FAERS Safety Report 4615414-4 (Version None)
Quarter: 2005Q1

REPORT INFORMATION
  Report Type: 
  Country: None (occurrence: None)
  Receive Date: 20050317
  Receipt Date: 20050304
  Transmission Date: 20050727
  Serious: Yes (Other)
  Sender: FDA-Public Use
  Company Number: 2005029086

PATIENT
  Sex: Female

DRUGS (3)
  1. BEXTRA [Suspect]
     Indication: ARTHRITIS
  2. ROFECOXIB [Concomitant]
  3. ALENDRONATE SODIUM [Concomitant]

REACTIONS (3)
  - BLISTER [None]
  - NASOPHARYNGEAL DISORDER [None]
  - ORAL MUCOSAL BLISTERING [None]
